FAERS Safety Report 7831857-X (Version None)
Quarter: 2011Q4

REPORT INFORMATION
  Report Type: 
  Country: None (occurrence: None)
  Receive Date: 20111021
  Receipt Date: 20111018
  Transmission Date: 20120403
  Serious: Yes (Other)
  Sender: FDA-Public Use
  Company Number: US-AMGEN-USASP2011050877

PATIENT
  Sex: Male
  Weight: 84.807 kg

DRUGS (5)
  1. RITUXAN [Concomitant]
     Dosage: 500 MUG/M2, QWK
     Route: 042
     Dates: start: 20101130, end: 20110201
  2. NPLATE [Suspect]
     Indication: CHRONIC LYMPHOCYTIC LEUKAEMIA
  3. CORTICOSTEROIDS [Concomitant]
     Indication: THROMBOCYTOPENIA
  4. NPLATE [Suspect]
     Indication: THROMBOCYTOPENIA
     Dosage: 10 MUG/KG, QWK
     Route: 058
     Dates: start: 20101130, end: 20110803
  5. DANAZOL [Concomitant]
     Indication: THROMBOCYTOPENIA

REACTIONS (3)
  - THERAPEUTIC RESPONSE DECREASED [None]
  - DISEASE PROGRESSION [None]
  - PLATELET COUNT DECREASED [None]
